FAERS Safety Report 6902176-0 (Version None)
Quarter: 2010Q3

REPORT INFORMATION
  Report Type: 
  Country: None (occurrence: None)
  Receive Date: 20100803
  Receipt Date: 20080430
  Transmission Date: 20110219
  Serious: No
  Sender: FDA-Public Use
  Company Number: US-PFIZER INC-2008038952

PATIENT
  Sex: Female
  Weight: 131.81 kg

DRUGS (4)
  1. LYRICA [Suspect]
     Indication: NERVE INJURY
     Dates: start: 20070101, end: 20070101
  2. SYNTHROID [Concomitant]
  3. ATENOLOL [Concomitant]
  4. MONTELUKAST SODIUM [Concomitant]

REACTIONS (2)
  - MIGRAINE [None]
  - VISION BLURRED [None]
